FAERS Safety Report 6175714-6 (Version None)
Quarter: 2009Q2

REPORT INFORMATION
  Report Type: 
  Country: None (occurrence: None)
  Receive Date: 20090501
  Receipt Date: 20090420
  Transmission Date: 20091009
  Serious: Yes (Hospitalization)
  Sender: FDA-Public Use
  Company Number: US-SOLVAY-00209002020

PATIENT
  Age: 42 Year
  Sex: Male
  Weight: 83.63 kg

DRUGS (5)
  1. LOTREL [Concomitant]
     Indication: BLOOD PRESSURE
     Dosage: DAILY DOSE: .5 DOSAGE FORM (2.5/10)
     Route: 048
     Dates: start: 19930101, end: 20090201
  2. ANDROGEL [Suspect]
     Indication: BLOOD TESTOSTERONE DECREASED
     Dosage: DAILY DOSE: 5 GRAM(S), VIA PUMP
     Route: 062
     Dates: start: 20080901
  3. OMEPRAZOLE/SODIUM BICARBONATE [Concomitant]
     Indication: GASTROOESOPHAGEAL REFLUX DISEASE
     Dosage: DAILY DOSE: 1 DOSAGE FORM (40/1100)
     Route: 048
     Dates: start: 20060101
  4. OXYCODONE HCL AND ACETAMINOPHEN [Concomitant]
     Indication: PAIN
     Dosage: DAILY DOSE: 1 DOSAGE FORM, AS NEEDED
     Route: 048
     Dates: start: 20090329
  5. CLONAZEPAM [Concomitant]
     Indication: ANXIETY
     Dosage: DAILY DOSE: 3 MILLIGRAM(S)
     Route: 048
     Dates: start: 20080401

REACTIONS (4)
  - BLOOD TESTOSTERONE DECREASED [None]
  - PROSTATE CANCER [None]
  - THERAPEUTIC RESPONSE UNEXPECTED [None]
  - THROMBOSIS [None]
